FAERS Safety Report 14576417 (Version 1)
Quarter: 2018Q1

REPORT INFORMATION
  Report Type: Report from Study
  Country: JP (occurrence: JP)
  Receive Date: 20180227
  Receipt Date: 20180227
  Transmission Date: 20180509
  Serious: Yes (Death, Other)
  Sender: FDA-Public Use
  Company Number: JP-BRISTOL-MYERS SQUIBB COMPANY-10784924

PATIENT
  Age: 65 Year
  Sex: Male
  Weight: 48 kg

DRUGS (5)
  1. EPIVIR [Suspect]
     Active Substance: LAMIVUDINE
     Indication: ACQUIRED IMMUNODEFICIENCY SYNDROME
     Dosage: 300 MG, QD
     Route: 048
     Dates: start: 20000615, end: 20000914
  2. SEROSTIM [Concomitant]
     Active Substance: SOMATROPIN
     Indication: PRODUCT USED FOR UNKNOWN INDICATION
     Dosage: UNK
     Route: 058
     Dates: start: 20000810, end: 20000905
  3. STAVUDINE. [Suspect]
     Active Substance: STAVUDINE
     Indication: ACQUIRED IMMUNODEFICIENCY SYNDROME
     Dosage: 30 MG, BID
     Route: 048
     Dates: start: 20000615, end: 20000914
  4. FOSCAVIR [Concomitant]
     Active Substance: FOSCARNET SODIUM
     Indication: PRODUCT USED FOR UNKNOWN INDICATION
     Dosage: UNK
     Route: 041
     Dates: start: 20000621, end: 20000714
  5. EFAVIRENZ. [Suspect]
     Active Substance: EFAVIRENZ
     Indication: PRODUCT USED FOR UNKNOWN INDICATION
     Dosage: 600 MG, QD
     Route: 048
     Dates: start: 20000615, end: 20000914

REACTIONS (1)
  - AIDS related complex [Fatal]

NARRATIVE: CASE EVENT DATE: 20001114
